FAERS Safety Report 6194485-0 (Version None)
Quarter: 2009Q2

REPORT INFORMATION
  Report Type: 
  Country: None (occurrence: None)
  Receive Date: 20090519
  Receipt Date: 20090511
  Transmission Date: 20091009
  Serious: No
  Sender: FDA-Public Use
  Company Number: US-JNJFOC-20090502547

PATIENT
  Sex: Female
  Weight: 75.75 kg

DRUGS (10)
  1. FENTANYL TRANSDERMAL SYSTEM [Suspect]
     Indication: FIBROMYALGIA
     Route: 062
  2. FENTANYL TRANSDERMAL SYSTEM [Suspect]
     Indication: OSTEOARTHRITIS
     Route: 062
  3. FENTANYL TRANSDERMAL SYSTEM [Suspect]
     Indication: BACK PAIN
     Route: 062
  4. ZYRTEC [Suspect]
     Indication: MULTIPLE ALLERGIES
     Route: 048
  5. NEURONTIN [Concomitant]
     Indication: PAIN
     Route: 048
  6. SIMVASTATIN [Concomitant]
     Indication: BLOOD CHOLESTEROL
     Route: 048
  7. SYNTHROID [Concomitant]
     Indication: THYROID DISORDER
     Route: 048
  8. ATENOLOL AND CHLORTHALIDONE [Concomitant]
     Indication: BLOOD PRESSURE
     Route: 048
  9. VENLAFAXINE HCL [Concomitant]
     Indication: DEPRESSION
     Route: 048
  10. BUSPAR [Concomitant]
     Indication: ANXIETY
     Route: 048

REACTIONS (3)
  - DRUG DOSE OMISSION [None]
  - FEELING ABNORMAL [None]
  - IMPAIRED DRIVING ABILITY [None]
